FAERS Safety Report 19217671 (Version 1)
Quarter: 2021Q2

REPORT INFORMATION
  Report Type: Spontaneous
  Country: SE (occurrence: SE)
  Receive Date: 20210505
  Receipt Date: 20210505
  Transmission Date: 20210717
  Serious: Yes (Disabling)
  Sender: FDA-Public Use
  Company Number: SE-BAYER-2021-133254

PATIENT
  Age: 19 Year
  Sex: Female
  Weight: 80 kg

DRUGS (1)
  1. MIRENA [Suspect]
     Active Substance: LEVONORGESTREL
     Indication: CONTRACEPTION
     Dosage: 20 ?G PER DAY CONTINUOUSLY
     Route: 015
     Dates: start: 20190701, end: 20210301

REACTIONS (4)
  - Urinary tract infection [Recovered/Resolved]
  - Mood swings [Recovered/Resolved]
  - Genital infection fungal [Recovered/Resolved with Sequelae]
  - Bacterial vaginosis [Recovered/Resolved with Sequelae]

NARRATIVE: CASE EVENT DATE: 20190708
